FAERS Safety Report 12139968 (Version 1)
Quarter: 2016Q1

REPORT INFORMATION
  Report Type: Spontaneous
  Country: US (occurrence: None)
  Receive Date: 20160302
  Receipt Date: 20160302
  Transmission Date: 20160526
  Serious: No
  Sender: FDA-Public Use
  Company Number: None

PATIENT
  Sex: Female

DRUGS (1)
  1. KERALYT 5 [Suspect]
     Active Substance: SALICYLIC ACID
     Indication: PSORIASIS

REACTIONS (3)
  - Psoriasis [None]
  - Product quality issue [None]
  - Drug ineffective [None]
